FAERS Safety Report 18854323 (Version 1)
Quarter: 2021Q1

REPORT INFORMATION
  Report Type: Spontaneous
  Country: US (occurrence: US)
  Receive Date: 20210205
  Receipt Date: 20210205
  Transmission Date: 20210420
  Serious: Yes (Other)
  Sender: FDA-Public Use
  Company Number: US-AMGEN-USASP2021014847

PATIENT
  Age: 74 Year
  Sex: Female

DRUGS (1)
  1. REPATHA [Suspect]
     Active Substance: EVOLOCUMAB
     Indication: BLOOD CHOLESTEROL INCREASED
     Dosage: 140 MILLIGRAM
     Route: 065
     Dates: start: 20210122

REACTIONS (11)
  - Rhinorrhoea [Unknown]
  - Headache [Unknown]
  - Swelling [Unknown]
  - Spinal fracture [Not Recovered/Not Resolved]
  - Bone pain [Unknown]
  - Bone swelling [Unknown]
  - Head discomfort [Unknown]
  - Oropharyngeal pain [Unknown]
  - Joint swelling [Unknown]
  - Injection site pain [Unknown]
  - Arthralgia [Not Recovered/Not Resolved]

NARRATIVE: CASE EVENT DATE: 202101
